FAERS Safety Report 17193310 (Version 3)
Quarter: 2020Q1

REPORT INFORMATION
  Report Type: Spontaneous
  Country: US (occurrence: US)
  Receive Date: 20191223
  Receipt Date: 20200116
  Transmission Date: 20200409
  Serious: Yes (Hospitalization)
  Sender: FDA-Public Use
  Company Number: US-TEVA-2019-US-1155617

PATIENT
  Age: 69 Year
  Sex: Male

DRUGS (2)
  1. SYNRIBO [Suspect]
     Active Substance: OMACETAXINE MEPESUCCINATE
     Dosage: 3 MG/0.86 ML, BID FOR 14 DAYS
     Dates: start: 20200103
  2. SYNRIBO [Suspect]
     Active Substance: OMACETAXINE MEPESUCCINATE
     Indication: CHRONIC MYELOID LEUKAEMIA
     Dosage: 3 MG/0.86 ML, BID FOR 14 DAYS
     Dates: start: 20191210

REACTIONS (5)
  - Asthenia [Unknown]
  - Fall [Unknown]
  - Arthralgia [Unknown]
  - Fatigue [Unknown]
  - Hospitalisation [Unknown]

NARRATIVE: CASE EVENT DATE: 201912
